FAERS Safety Report 25275091 (Version 1)
Quarter: 2025Q2

REPORT INFORMATION
  Report Type: Spontaneous
  Country: MX (occurrence: MX)
  Receive Date: 20250506
  Receipt Date: 20250506
  Transmission Date: 20250717
  Serious: Yes (Other)
  Sender: ELI LILLY AND COMPANY
  Company Number: MX-ELI_LILLY_AND_COMPANY-MX202504022914

PATIENT
  Age: 31 Year
  Sex: Female

DRUGS (1)
  1. VERZENIO [Suspect]
     Active Substance: ABEMACICLIB
     Indication: Adjuvant therapy
     Dosage: 150 MG, BID (EVERY 12 HOURS)
     Route: 048
     Dates: start: 2023

REACTIONS (1)
  - Hepatic failure [Not Recovered/Not Resolved]
